FAERS Safety Report 4941920-9 (Version None)
Quarter: 2006Q1

REPORT INFORMATION
  Report Type: 
  Country: None (occurrence: None)
  Receive Date: 20060313
  Receipt Date: 20060302
  Transmission Date: 20060701
  Serious: Yes (Hospitalization, Disabling)
  Sender: FDA-Public Use
  Company Number: US-MERCK-0603USA00602

PATIENT
  Age: 43 Year
  Sex: Male
  Weight: 100 kg

DRUGS (1)
  1. VIOXX [Suspect]
     Route: 048
     Dates: start: 20010101, end: 20040901

REACTIONS (4)
  - CARDIAC DISORDER [None]
  - CORONARY ARTERY DISEASE [None]
  - MYOCARDIAL INFARCTION [None]
  - PRESCRIBED OVERDOSE [None]
